FAERS Safety Report 7433534-6 (Version None)
Quarter: 2011Q2

REPORT INFORMATION
  Report Type: 
  Country: None (occurrence: None)
  Receive Date: 20110422
  Receipt Date: 20110419
  Transmission Date: 20111010
  Serious: No
  Sender: FDA-Public Use
  Company Number: US-B.I. PHARMACEUTICALS,INC./RIDGEFIELD-2011-BP-11216BP

PATIENT
  Sex: Female

DRUGS (2)
  1. SOTALOL [Concomitant]
     Indication: ATRIAL FIBRILLATION
     Dosage: 80 NR
     Route: 048
  2. PRADAXA [Suspect]
     Indication: ATRIAL FIBRILLATION
     Dosage: 300 MG
     Route: 048
     Dates: start: 20110301

REACTIONS (2)
  - BURNING SENSATION [None]
  - HEADACHE [None]
